FAERS Safety Report 14134938 (Version 3)
Quarter: 2018Q4

REPORT INFORMATION
  Report Type: Report from Study
  Country: US (occurrence: US)
  Receive Date: 20171027
  Receipt Date: 20181222
  Transmission Date: 20190204
  Serious: Yes (Hospitalization)
  Sender: FDA-Public Use
  Company Number: PHHY2013US084819

PATIENT
  Age: 72 Year
  Sex: Female
  Weight: 81 kg

DRUGS (3)
  1. BACLOFEN. [Concomitant]
     Active Substance: BACLOFEN
     Indication: MUSCLE SPASMS
     Dosage: 100 MG, UNK
     Route: 065
     Dates: start: 20140522
  2. GILENYA [Suspect]
     Active Substance: FINGOLIMOD HYDROCHLORIDE
     Indication: MULTIPLE SCLEROSIS
     Dosage: 0.5 MG, QD
     Route: 048
     Dates: start: 20120509
  3. GILENYA [Suspect]
     Active Substance: FINGOLIMOD HYDROCHLORIDE
     Dosage: 0.5 MG, QD
     Route: 048
     Dates: start: 20130722

REACTIONS (12)
  - Lymphocyte count decreased [Unknown]
  - Arthralgia [Unknown]
  - Migraine [Unknown]
  - Foot fracture [Recovering/Resolving]
  - White blood cell count decreased [Unknown]
  - Pain in extremity [Unknown]
  - Headache [Unknown]
  - Hypoacusis [Unknown]
  - Vision blurred [Recovered/Resolved]
  - Fall [Recovered/Resolved]
  - Muscular weakness [Not Recovered/Not Resolved]
  - Dizziness [Recovered/Resolved]

NARRATIVE: CASE EVENT DATE: 20130101
